FAERS Safety Report 12727020 (Version 17)
Quarter: 2020Q2

REPORT INFORMATION
  Report Type: Spontaneous
  Country: CA (occurrence: CA)
  Receive Date: 20160909
  Receipt Date: 20200423
  Transmission Date: 20200713
  Serious: Yes (Other)
  Sender: FDA-Public Use
  Company Number: CA-ROCHE-1827401

PATIENT
  Age: 22 Year
  Sex: Female

DRUGS (16)
  1. XOLAIR [Suspect]
     Active Substance: OMALIZUMAB
     Route: 058
     Dates: start: 20170929
  2. XOLAIR [Suspect]
     Active Substance: OMALIZUMAB
     Route: 058
     Dates: start: 20171027
  3. XOLAIR [Suspect]
     Active Substance: OMALIZUMAB
     Route: 058
     Dates: start: 20181105
  4. XOLAIR [Suspect]
     Active Substance: OMALIZUMAB
     Route: 058
     Dates: start: 20161124
  5. XOLAIR [Suspect]
     Active Substance: OMALIZUMAB
     Route: 058
     Dates: start: 20181228
  6. ADVAIR HFA [Concomitant]
     Active Substance: FLUTICASONE PROPIONATE\SALMETEROL XINAFOATE
     Indication: PRODUCT USED FOR UNKNOWN INDICATION
     Route: 065
  7. PULMICORT TURBUHALER [Concomitant]
     Active Substance: BUDESONIDE
     Indication: PRODUCT USED FOR UNKNOWN INDICATION
     Route: 065
  8. XOLAIR [Suspect]
     Active Substance: OMALIZUMAB
     Route: 058
     Dates: start: 20160901
  9. XOLAIR [Suspect]
     Active Substance: OMALIZUMAB
     Route: 058
     Dates: start: 20180809
  10. XOLAIR [Suspect]
     Active Substance: OMALIZUMAB
     Route: 058
     Dates: start: 20170217
  11. XOLAIR [Suspect]
     Active Substance: OMALIZUMAB
     Route: 058
     Dates: start: 20180712
  12. VENTOLIN [Concomitant]
     Active Substance: ALBUTEROL SULFATE
     Indication: PRODUCT USED FOR UNKNOWN INDICATION
     Route: 065
  13. SINGULAIR [Concomitant]
     Active Substance: MONTELUKAST SODIUM
     Indication: PRODUCT USED FOR UNKNOWN INDICATION
     Route: 065
  14. XOLAIR [Suspect]
     Active Substance: OMALIZUMAB
     Indication: ASTHMA
     Route: 058
     Dates: start: 20131127
  15. XOLAIR [Suspect]
     Active Substance: OMALIZUMAB
     Route: 058
     Dates: start: 20170512
  16. XOLAIR [Suspect]
     Active Substance: OMALIZUMAB
     Route: 058
     Dates: start: 20181004

REACTIONS (28)
  - Fatigue [Recovering/Resolving]
  - Polyp [Unknown]
  - Stress [Unknown]
  - Malaise [Unknown]
  - Nasopharyngitis [Unknown]
  - Product dose omission [Unknown]
  - Rhinitis [Unknown]
  - Anaemia [Recovering/Resolving]
  - Drug ineffective [Unknown]
  - Obstructive airways disorder [Unknown]
  - Pharyngitis streptococcal [Unknown]
  - Road traffic accident [Unknown]
  - Feeding disorder [Unknown]
  - Weight decreased [Unknown]
  - Asthma [Unknown]
  - Muscle spasms [Recovering/Resolving]
  - Vomiting [Unknown]
  - Concussion [Unknown]
  - Hypersensitivity [Unknown]
  - Cough [Unknown]
  - Ear infection [Unknown]
  - General physical health deterioration [Unknown]
  - Injection site reaction [Recovered/Resolved]
  - Sinus congestion [Unknown]
  - Nasal polyps [Recovering/Resolving]
  - Syncope [Unknown]
  - Rhinorrhoea [Unknown]
  - Hypoventilation [Unknown]

NARRATIVE: CASE EVENT DATE: 20151021
